FAERS Safety Report 18617512 (Version 1)
Quarter: 2020Q4

REPORT INFORMATION
  Report Type: Spontaneous
  Country: US (occurrence: US)
  Receive Date: 20201215
  Receipt Date: 20201215
  Transmission Date: 20210114
  Serious: No
  Sender: FDA-Public Use
  Company Number: US-SA-2020SA358035

PATIENT

DRUGS (3)
  1. DUPIXENT [Suspect]
     Active Substance: DUPILUMAB
     Dosage: UNK
     Route: 065
  2. DUPIXENT [Suspect]
     Active Substance: DUPILUMAB
     Indication: DERMATITIS
     Dosage: 600 MG, 1X
     Route: 058
  3. IVERMECTIN. [Concomitant]
     Active Substance: IVERMECTIN

REACTIONS (4)
  - Somnolence [Not Recovered/Not Resolved]
  - Product use issue [Unknown]
  - Dermatitis [Recovering/Resolving]
  - Fatigue [Not Recovered/Not Resolved]
